FAERS Safety Report 6881933-3 (Version None)
Quarter: 2010Q3

REPORT INFORMATION
  Report Type: 
  Country: None (occurrence: None)
  Receive Date: 20100727
  Receipt Date: 20100727
  Transmission Date: 20110219
  Serious: Yes (Life-Threatening)
  Sender: FDA-Public Use
  Company Number: None

PATIENT
  Sex: Female
  Weight: 63.05 kg

DRUGS (1)
  1. LORAZEPAM [Suspect]
     Indication: CONVULSION
     Dosage: 2 MG SL Q 4 PRN
     Route: 060

REACTIONS (2)
  - DRUG INEFFECTIVE [None]
  - PRODUCT SOLUBILITY ABNORMAL [None]
